FAERS Safety Report 7371802-7 (Version None)
Quarter: 2011Q1

REPORT INFORMATION
  Report Type: 
  Country: None (occurrence: None)
  Receive Date: 20110324
  Receipt Date: 20110317
  Transmission Date: 20110831
  Serious: Yes (Life-Threatening, Hospitalization)
  Sender: FDA-Public Use
  Company Number: JP-JNJFOC-20101108482

PATIENT
  Sex: Female
  Weight: 41 kg

DRUGS (5)
  1. DOXIL [Suspect]
     Indication: OVARIAN EPITHELIAL CANCER
     Dosage: CYCLE 1
     Route: 042
  2. DOXIL [Suspect]
     Dosage: CYCLE 2
     Route: 042
  3. NEUTROGIN [Suspect]
     Indication: FEBRILE NEUTROPENIA
     Route: 058
  4. KYTRIL [Concomitant]
     Indication: ANTIEMETIC SUPPORTIVE CARE
     Route: 042
  5. MEROPENEM [Suspect]
     Indication: FEBRILE NEUTROPENIA
     Route: 041

REACTIONS (4)
  - FEBRILE NEUTROPENIA [None]
  - INTERSTITIAL LUNG DISEASE [None]
  - BONE MARROW FAILURE [None]
  - PYREXIA [None]
